FAERS Safety Report 25826840 (Version 1)
Quarter: 2025Q3

REPORT INFORMATION
  Report Type: Report from Study
  Country: US (occurrence: US)
  Receive Date: 20250920
  Receipt Date: 20250920
  Transmission Date: 20251021
  Serious: Yes (Hospitalization, Other)
  Sender: ABBVIE
  Company Number: US-ABBVIE-6203312

PATIENT
  Age: 46 Year
  Sex: Male

DRUGS (5)
  1. RINVOQ [Suspect]
     Active Substance: UPADACITINIB
     Indication: Colitis ulcerative
     Dosage: STRENGTH : 45MG FOR 12 WEEKS, LAST ADMIN DATE 2025
     Route: 048
     Dates: start: 202502
  2. RINVOQ [Suspect]
     Active Substance: UPADACITINIB
     Indication: Colitis ulcerative
     Dosage: STRENGTH : 45MG
     Route: 048
     Dates: start: 202505
  3. RINVOQ [Suspect]
     Active Substance: UPADACITINIB
     Indication: Colitis ulcerative
     Dosage: FIRST AND LAST ADMIN DATE-2025
     Route: 048
  4. RINVOQ [Suspect]
     Active Substance: UPADACITINIB
     Indication: Colitis ulcerative
     Dosage: STRENGTH : 45MG FOR 12 WEEKS, LAST ADMIN DATE 2025
     Route: 048
     Dates: start: 20250129
  5. SKYRIZI [Concomitant]
     Active Substance: RISANKIZUMAB-RZAA
     Indication: Product used for unknown indication

REACTIONS (9)
  - Fistula [Unknown]
  - Flatulence [Recovered/Resolved]
  - Frequent bowel movements [Unknown]
  - Pain [Unknown]
  - Insomnia [Unknown]
  - Mucous stools [Unknown]
  - Product use issue [Unknown]
  - Acne cystic [Not Recovered/Not Resolved]
  - Drug ineffective [Unknown]

NARRATIVE: CASE EVENT DATE: 20250101
